FAERS Safety Report 7271871-9 (Version None)
Quarter: 2011Q1

REPORT INFORMATION
  Report Type: 
  Country: None (occurrence: None)
  Receive Date: 20110126
  Receipt Date: 20110112
  Transmission Date: 20110831
  Serious: Yes (Other)
  Sender: FDA-Public Use
  Company Number: DSJ-2011-00899

PATIENT
  Age: 53 Year
  Sex: Male

DRUGS (2)
  1. BENICAR [Suspect]
     Indication: HYPERTENSION
     Dosage: 20 MG (20 MG, 1 IN 1 D), PER ORAL
     Route: 048
     Dates: start: 20100101, end: 20101101
  2. CHEMOTHERAPY [Concomitant]

REACTIONS (5)
  - HYPERTRIGLYCERIDAEMIA [None]
  - HYPERGLYCAEMIA [None]
  - DRUG INEFFECTIVE [None]
  - GASTRIC CANCER RECURRENT [None]
  - HYPERTHYROIDISM [None]
